FAERS Safety Report 8083484-X (Version None)
Quarter: 2012Q1

REPORT INFORMATION
  Report Type: 
  Country: None (occurrence: None)
  Receive Date: 20120127
  Receipt Date: 20110121
  Transmission Date: 20120608
  Serious: No
  Sender: FDA-Public Use
  Company Number: US-ABBOTT-11P-163-0700798-00

PATIENT
  Age: 55 Year
  Sex: Female

DRUGS (14)
  1. SIMVASTATIN [Concomitant]
     Indication: BLOOD CHOLESTEROL INCREASED
  2. LANTUS [Concomitant]
     Indication: TYPE 2 DIABETES MELLITUS
     Dosage: AT HOUR OF SLEEP
  3. HUMIRA [Suspect]
     Indication: PSORIATIC ARTHROPATHY
     Route: 058
     Dates: start: 20100104
  4. METFFORMIN HYDROCHLORIDE [Concomitant]
     Indication: TYPE 2 DIABETES MELLITUS
  5. VITAMIN D [Concomitant]
     Indication: PRODUCT USED FOR UNKNOWN INDICATION
  6. B12 COMPLEX VITAMIN [Concomitant]
     Indication: SUPPLEMENTATION THERAPY
  7. METHOTREXATE [Concomitant]
     Indication: PRODUCT USED FOR UNKNOWN INDICATION
  8. LOVAZA [Concomitant]
     Indication: SUPPLEMENTATION THERAPY
  9. CALCIUM [Concomitant]
     Indication: PRODUCT USED FOR UNKNOWN INDICATION
  10. QUINAPRIL [Concomitant]
     Indication: TYPE 2 DIABETES MELLITUS
  11. ASPIRIN [Concomitant]
     Indication: BLOOD CHOLESTEROL INCREASED
  12. FOLIC ACID [Concomitant]
     Indication: IMMUNE SYSTEM DISORDER
  13. ATENOLOL [Concomitant]
     Indication: HYPERTENSION
  14. HYDRALAZINE HCL [Concomitant]
     Indication: HYPERTENSION

REACTIONS (3)
  - HYPERTENSION [None]
  - HEADACHE [None]
  - FEELING ABNORMAL [None]
